FAERS Safety Report 7746440 (Version 5)
Quarter: 2013Q1

REPORT INFORMATION
  Report Type: Report from Study
  Country: DE (occurrence: DE)
  Receive Date: 20110103
  Receipt Date: 20130327
  Transmission Date: 20140127
  Serious: Yes (Hospitalization, Other)
  Sender: FDA-Public Use
  Company Number: DE-ELI_LILLY_AND_COMPANY-DE201012001958

PATIENT
  Age: 61 Year
  Sex: Male
  Weight: 60.6 kg

DRUGS (9)
  1. NECITUMUMAB [Suspect]
     Indication: NON-SMALL CELL LUNG CANCER
     Dosage: 800 MG, OTHER
     Route: 042
     Dates: start: 20101018, end: 20101229
  2. NECITUMUMAB [Suspect]
     Dosage: 600 MG/KG, UNK
     Route: 042
     Dates: start: 20101229
  3. GEMCITABINE HYDROCHLORIDE [Suspect]
     Indication: NON-SMALL CELL LUNG CANCER
     Dosage: 2085 MG, OTHER
     Route: 042
     Dates: start: 20101018, end: 20101229
  4. GEMCITABINE HYDROCHLORIDE [Suspect]
     Dosage: 1585 MG, UNK
     Route: 042
     Dates: start: 20101229
  5. CISPLATIN [Suspect]
     Indication: NON-SMALL CELL LUNG CANCER
     Dosage: 125 MG, OTHER
     Route: 042
     Dates: start: 20101018, end: 20101229
  6. CISPLATIN [Suspect]
     Dosage: UNK
     Dates: start: 20101229
  7. DELIX [Concomitant]
     Indication: HYPERTENSION
     Dates: start: 20101014
  8. RAMIPRIL [Concomitant]
     Indication: HYPERTENSION
     Dates: start: 20101004
  9. FORMOTEROL [Concomitant]
     Indication: CHRONIC OBSTRUCTIVE PULMONARY DISEASE
     Dates: start: 201009

REACTIONS (4)
  - Diarrhoea [Recovered/Resolved]
  - Dehydration [Recovered/Resolved]
  - Atrial fibrillation [Recovered/Resolved]
  - Syncope [None]
